FAERS Safety Report 21633704 (Version 2)
Quarter: 2023Q1

REPORT INFORMATION
  Report Type: Report from Study
  Country: US (occurrence: US)
  Receive Date: 20221123
  Receipt Date: 20230120
  Transmission Date: 20230417
  Serious: No
  Sender: FDA-Public Use
  Company Number: US-ABBVIE-22K-163-4375984-00

PATIENT
  Sex: Male

DRUGS (3)
  1. IMBRUVICA [Suspect]
     Active Substance: IBRUTINIB
     Indication: Chronic lymphocytic leukaemia
     Dosage: STRENGTH: 420 MG
     Route: 048
     Dates: start: 202203
  2. IMBRUVICA [Suspect]
     Active Substance: IBRUTINIB
     Indication: Chronic lymphocytic leukaemia
     Dosage: DOSE REDUCED
     Route: 048
     Dates: start: 20220910
  3. IMBRUVICA [Suspect]
     Active Substance: IBRUTINIB
     Indication: Chronic lymphocytic leukaemia
     Dosage: TIME INTERVAL: 0.33333333 DAYS
     Route: 048
     Dates: start: 20220316

REACTIONS (17)
  - White blood cell count increased [Unknown]
  - Flatulence [Unknown]
  - Abdominal distension [Unknown]
  - Joint swelling [Unknown]
  - Weight increased [Unknown]
  - White blood cell count abnormal [Unknown]
  - Abnormal faeces [Unknown]
  - Localised infection [Unknown]
  - Scratch [Unknown]
  - Pain [Unknown]
  - Constipation [Unknown]
  - Red blood cell count decreased [Unknown]
  - Wound infection [Unknown]
  - Rash [Unknown]
  - Fatigue [Not Recovered/Not Resolved]
  - Nausea [Unknown]
  - Headache [Unknown]
